FAERS Safety Report 8618762-6 (Version None)
Quarter: 2012Q3

REPORT INFORMATION
  Report Type: 
  Country: None (occurrence: None)
  Receive Date: 20120816
  Receipt Date: 20120816
  Transmission Date: 20120928
  Serious: No
  Sender: FDA-Public Use
  Company Number: None

PATIENT

DRUGS (1)
  1. BISMUTH SUBSALICYLATE [Suspect]
     Indication: DIARRHOEA
     Dosage: 30ML 1 HOUR PO
     Route: 048

REACTIONS (3)
  - GASTRIC DISORDER [None]
  - PRODUCT PACKAGING ISSUE [None]
  - PRODUCT CONTAMINATION MICROBIAL [None]
